FAERS Safety Report 16317446 (Version 1)
Quarter: 2019Q2

REPORT INFORMATION
  Report Type: Spontaneous
  Country: US (occurrence: US)
  Receive Date: 20190516
  Receipt Date: 20190516
  Transmission Date: 20190711
  Serious: No
  Sender: FDA-Public Use
  Company Number: US-AMGEN-USASP2019074549

PATIENT
  Age: 76 Year
  Sex: Male

DRUGS (3)
  1. REPATHA [Suspect]
     Active Substance: EVOLOCUMAB
     Indication: BLOOD CHOLESTEROL ABNORMAL
     Dosage: 140 MILLIGRAM, Q2WK
     Route: 065
     Dates: start: 20190422
  2. CRESTOR [Concomitant]
     Active Substance: ROSUVASTATIN CALCIUM
  3. LOVASTATIN. [Concomitant]
     Active Substance: LOVASTATIN

REACTIONS (4)
  - Blood cholesterol increased [Unknown]
  - General physical health deterioration [Unknown]
  - Constipation [Unknown]
  - Dysuria [Unknown]
